FAERS Safety Report 8475093-5 (Version None)
Quarter: 2012Q2

REPORT INFORMATION
  Report Type: 
  Country: None (occurrence: None)
  Receive Date: 20120622
  Receipt Date: 20120531
  Transmission Date: 20120825
  Serious: Yes (Other)
  Sender: FDA-Public Use
  Company Number: US-2012-10074

PATIENT
  Age: 42 Year
  Sex: Female

DRUGS (5)
  1. DIOVAN [Concomitant]
  2. OPC-41061 (TOLVAPTAN) TABLET, 15MG MILLIGRAM(S) [Suspect]
     Indication: CONGENITAL CYSTIC KIDNEY DISEASE
     Dosage: 45/15 MG, ORAL
     Route: 048
     Dates: start: 20111206, end: 20120124
  3. OPC-41061 (TOLVAPTAN) TABLET, 15MG MILLIGRAM(S) [Suspect]
     Indication: CONGENITAL CYSTIC KIDNEY DISEASE
     Dosage: 45/15 MG, ORAL
     Route: 048
     Dates: start: 20120201
  4. CARVEDILOL [Concomitant]
  5. RAMPIRIL(RAMPIRIL) [Concomitant]

REACTIONS (1)
  - UPPER RESPIRATORY TRACT INFECTION [None]
